FAERS Safety Report 23933644 (Version 1)
Quarter: 2024Q2

REPORT INFORMATION
  Report Type: Spontaneous
  Country: US (occurrence: None)
  Receive Date: 20240602
  Receipt Date: 20240602
  Transmission Date: 20240716
  Serious: Yes (unspecified)
  Sender: FDA-Public Use
  Company Number: None

PATIENT
  Age: 72 Year
  Sex: Female
  Weight: 59.4 kg

DRUGS (12)
  1. SAVELLA [Suspect]
     Active Substance: MILNACIPRAN HYDROCHLORIDE
     Indication: Fibromyalgia
     Dosage: OTHER FREQUENCY : GRADUATED EVERYDAY;?
     Route: 048
     Dates: start: 20240507, end: 20240516
  2. PREGABALIN [Concomitant]
     Active Substance: PREGABALIN
  3. ESTRADIOL [Concomitant]
     Active Substance: ESTRADIOL
  4. Daily: Multi vitamin for women 50+ [Concomitant]
  5. Cogniflo [Concomitant]
  6. GUAIFENESIN [Concomitant]
     Active Substance: GUAIFENESIN
  7. CALCIUM [Concomitant]
     Active Substance: CALCIUM
  8. Glucosamin/Chondroitin [Concomitant]
  9. PREGABALIN [Concomitant]
     Active Substance: PREGABALIN
  10. SELENIUM [Concomitant]
     Active Substance: SELENIUM
  11. CYANOCOBALAMIN\DEXPANTHENOL\NIACINAMIDE\PYRIDOXINE HYDROCHLORIDE\RIBOF [Concomitant]
     Active Substance: CYANOCOBALAMIN\DEXPANTHENOL\NIACINAMIDE\PYRIDOXINE HYDROCHLORIDE\RIBOFLAVIN 5^-PHOSPHATE SODIUM\THIA
  12. COENZYME Q10 [Concomitant]
     Active Substance: DIETARY SUPPLEMENT\UBIDECARENONE

REACTIONS (3)
  - Bladder pain [None]
  - Cystitis [None]
  - Therapy cessation [None]

NARRATIVE: CASE EVENT DATE: 20240516
